FAERS Safety Report 23397019 (Version 1)
Quarter: 2024Q1

REPORT INFORMATION
  Report Type: Spontaneous
  Country: US (occurrence: None)
  Receive Date: 20240112
  Receipt Date: 20240112
  Transmission Date: 20240410
  Serious: Yes (Death, Hospitalization)
  Sender: FDA-Public Use
  Company Number: None

PATIENT
  Age: 63 Year
  Sex: Female
  Weight: 67 kg

DRUGS (1)
  1. CISPLATIN [Suspect]
     Active Substance: CISPLATIN
     Dates: end: 20161217

REACTIONS (11)
  - Pancreatitis [None]
  - White blood cell count decreased [None]
  - Neutrophil count decreased [None]
  - Haemoglobin decreased [None]
  - Reticulocyte count decreased [None]
  - Platelet count decreased [None]
  - Acute myeloid leukaemia [None]
  - Febrile neutropenia [None]
  - Pneumonia [None]
  - Pneumonia fungal [None]
  - Toxic encephalopathy [None]

NARRATIVE: CASE EVENT DATE: 20230901
